FAERS Safety Report 26097091 (Version 1)
Quarter: 2025Q4

REPORT INFORMATION
  Report Type: Spontaneous
  Country: US (occurrence: US)
  Receive Date: 20251127
  Receipt Date: 20251127
  Transmission Date: 20260118
  Serious: No
  Sender: MERCK SHARP & DOHME LLC
  Company Number: US-009507513-2351646

PATIENT
  Age: 54 Year
  Sex: Female
  Weight: 65.771 kg

DRUGS (47)
  1. SOTATERCEPT [Suspect]
     Active Substance: SOTATERCEPT
     Indication: Product used for unknown indication
     Route: 065
  2. SOTATERCEPT [Suspect]
     Active Substance: SOTATERCEPT
  3. SOTATERCEPT [Suspect]
     Active Substance: SOTATERCEPT
  4. SOTATERCEPT [Suspect]
     Active Substance: SOTATERCEPT
  5. YUTREPIA [Suspect]
     Active Substance: TREPROSTINIL SODIUM
     Indication: Pulmonary arterial hypertension
     Dosage: 26.5 MICROGRAM, QID (INHALE 2 BREATHS PER CAPSULE)
     Route: 055
     Dates: start: 2025
  6. YUTREPIA [Suspect]
     Active Substance: TREPROSTINIL SODIUM
     Indication: Pulmonary arterial hypertension
     Dosage: 106 MICROGRAM, QID (INHALE 2 BREATHS PER CAPSULE), RESPIRATORY
     Route: 055
     Dates: start: 2025
  7. CYCLOBENZAPRINE [Concomitant]
     Active Substance: CYCLOBENZAPRINE
  8. CLOBETASOL PROPIONATE [Concomitant]
     Active Substance: CLOBETASOL PROPIONATE
  9. METAXALONE [Concomitant]
     Active Substance: METAXALONE
  10. HERBALS\TURMERIC [Concomitant]
     Active Substance: HERBALS\TURMERIC
  11. ONDANSETRON [Concomitant]
     Active Substance: ONDANSETRON
  12. METOPROLOL SUCCINATE [Concomitant]
     Active Substance: METOPROLOL SUCCINATE
  13. AMITRIPTYLINE [Concomitant]
     Active Substance: AMITRIPTYLINE
  14. METHOCARBAMOL [Concomitant]
     Active Substance: METHOCARBAMOL
  15. BETAPACE [Concomitant]
     Active Substance: SOTALOL HYDROCHLORIDE
  16. DICLOFENAC [Concomitant]
     Active Substance: DICLOFENAC
  17. OXYGEN [Concomitant]
     Active Substance: OXYGEN
  18. LANTUS SOLOSTAR [Concomitant]
     Active Substance: INSULIN GLARGINE
  19. OPSUMIT [Concomitant]
     Active Substance: MACITENTAN
  20. ESTRADIOL [Concomitant]
     Active Substance: ESTRADIOL
  21. DIGOXIN [Concomitant]
     Active Substance: DIGOXIN
  22. LYRICA [Concomitant]
     Active Substance: PREGABALIN
  23. ZINC [Concomitant]
     Active Substance: ZINC
  24. VITAMIN C [Concomitant]
     Active Substance: ASCORBIC ACID
  25. UNSPECIFIED INGREDIENT [Concomitant]
     Active Substance: UNSPECIFIED INGREDIENT
  26. METHOCARBAMOL [Concomitant]
     Active Substance: METHOCARBAMOL
  27. CYANOCOBALAMIN\FOLIC ACID [Concomitant]
     Active Substance: CYANOCOBALAMIN\FOLIC ACID
  28. SILDENAFIL CITRATE [Concomitant]
     Active Substance: SILDENAFIL CITRATE
  29. VEOZAH [Concomitant]
     Active Substance: FEZOLINETANT
  30. NITROGLYCERIN [Concomitant]
     Active Substance: NITROGLYCERIN
  31. ELIQUIS [Concomitant]
     Active Substance: APIXABAN
  32. LASIX [Concomitant]
     Active Substance: FUROSEMIDE
  33. ALDACTONE [Concomitant]
     Active Substance: SPIRONOLACTONE
  34. CLOPIDOGREL [Concomitant]
     Active Substance: CLOPIDOGREL BISULFATE
  35. FARXIGA [Concomitant]
     Active Substance: DAPAGLIFLOZIN PROPANEDIOL
  36. ATORVASTATIN [Concomitant]
     Active Substance: ATORVASTATIN
  37. CLONIDINE [Concomitant]
     Active Substance: CLONIDINE
  38. ESOMEPRAZOLE MAGNESIUM [Concomitant]
     Active Substance: ESOMEPRAZOLE MAGNESIUM
  39. POTASSIUM CHLORIDE [Concomitant]
     Active Substance: POTASSIUM CHLORIDE
  40. LOSARTAN AND HYDROCHLOROTHIAZIDE [Concomitant]
     Active Substance: HYDROCHLOROTHIAZIDE\LOSARTAN POTASSIUM
  41. WELLBUTRIN SR [Concomitant]
     Active Substance: BUPROPION HYDROCHLORIDE
  42. INFLUENZA VIRUS VACCINE [Concomitant]
     Active Substance: INFLUENZA VIRUS VACCINE
  43. ALLERGY RELIEF D (CETIRIZINE HYDROCHLORIDE, PSEUDOEPHEDRINE HYDROCH... [Concomitant]
  44. PROTONIX [Concomitant]
     Active Substance: PANTOPRAZOLE SODIUM
  45. CALCIUM [Concomitant]
     Active Substance: CALCIUM
  46. DICYCLOMINE HYDROCHLORIDE [Concomitant]
     Active Substance: DICYCLOMINE HYDROCHLORIDE
  47. ESZOPICLONE [Concomitant]
     Active Substance: ESZOPICLONE

REACTIONS (1)
  - Injection site bruising [Unknown]

NARRATIVE: CASE EVENT DATE: 20250101
